FAERS Safety Report 19425819 (Version 1)
Quarter: 2021Q2

REPORT INFORMATION
  Report Type: Spontaneous
  Country: US (occurrence: US)
  Receive Date: 20210617
  Receipt Date: 20210617
  Transmission Date: 20210717
  Serious: Yes (Hospitalization)
  Sender: FDA-Public Use
  Company Number: US-GLOBAL BLOOD THERAPEUTICS INC-US-GBT-21-01658

PATIENT
  Age: 17 Year
  Sex: Female

DRUGS (2)
  1. OXBRYTA [Suspect]
     Active Substance: VOXELOTOR
     Indication: SICKLE CELL DISEASE
     Route: 048
     Dates: start: 20200227, end: 2021
  2. OXBRYTA [Suspect]
     Active Substance: VOXELOTOR
     Dosage: NOT PROVIDED
     Route: 048
     Dates: start: 2021

REACTIONS (3)
  - Off label use [Unknown]
  - Sickle cell anaemia with crisis [Unknown]
  - Therapy interrupted [Unknown]

NARRATIVE: CASE EVENT DATE: 20200227
